FAERS Safety Report 21160778 (Version 1)
Quarter: 2022Q3

REPORT INFORMATION
  Report Type: Spontaneous
  Country: US (occurrence: US)
  Receive Date: 20220802
  Receipt Date: 20220802
  Transmission Date: 20221026
  Serious: No
  Sender: FDA-Public Use
  Company Number: US-PUMA BIOTECHNOLOGY, LTD.-2022-PUM-US000531

PATIENT

DRUGS (1)
  1. NERLYNX [Suspect]
     Active Substance: NERATINIB
     Indication: Breast cancer
     Dosage: 240 MG, DAILY
     Route: 048
     Dates: start: 202108

REACTIONS (4)
  - Nasopharyngitis [Unknown]
  - Nasal congestion [Unknown]
  - Upper-airway cough syndrome [Unknown]
  - Cough [Unknown]
